FAERS Safety Report 4881960-1 (Version None)
Quarter: 2006Q1

REPORT INFORMATION
  Report Type: 
  Country: None (occurrence: None)
  Receive Date: 20060117
  Receipt Date: 20051216
  Transmission Date: 20060701
  Serious: No
  Sender: FDA-Public Use
  Company Number: GB-GLAXOSMITHKLINE-B0404001A

PATIENT
  Age: 25 Year
  Sex: Male
  Weight: 72 kg

DRUGS (3)
  1. KIVEXA [Suspect]
     Dosage: 1TAB PER DAY
     Route: 048
     Dates: start: 20051124
  2. EFAVIRENZ [Concomitant]
     Indication: HIV INFECTION
     Dosage: 600MG PER DAY
     Route: 048
     Dates: start: 20051124
  3. MAXOLON [Concomitant]
     Indication: NAUSEA
     Dosage: 10MG TWICE PER DAY
     Route: 048
     Dates: start: 20051112

REACTIONS (2)
  - RENAL DISORDER [None]
  - RENAL FAILURE [None]
